FAERS Safety Report 9783464 (Version 1)
Quarter: 2013Q4

REPORT INFORMATION
  Report Type: Spontaneous
  Country: US (occurrence: None)
  Receive Date: 20131223
  Receipt Date: 20131223
  Transmission Date: 20140711
  Serious: Yes (Life-Threatening, Hospitalization)
  Sender: FDA-Public Use
  Company Number: DAV-AE-FUR-13-09

PATIENT
  Age: 84 Year
  Sex: Male

DRUGS (6)
  1. FUROSEMIDE [Suspect]
     Indication: CARDIAC FAILURE CONGESTIVE
     Dosage: 40-160 MG QD/7YRS, PO + IV
  2. SIMVASTATIN [Concomitant]
  3. POTASSIUM CHLORIDE [Concomitant]
  4. CHLORTHALIDONE [Concomitant]
  5. RAMIPRIL [Concomitant]
  6. MULTIVITAMIN [Concomitant]

REACTIONS (3)
  - Haemoglobin decreased [None]
  - Thrombocytopenia [None]
  - Haematocrit decreased [None]
